FAERS Safety Report 12850615 (Version 1)
Quarter: 2016Q4

REPORT INFORMATION
  Report Type: Spontaneous
  Country: US (occurrence: US)
  Receive Date: 20161014
  Receipt Date: 20161014
  Transmission Date: 20170207
  Serious: No
  Sender: FDA-Public Use
  Company Number: ALCN2016US006996

PATIENT
  Age: 65 Year
  Sex: Male
  Weight: 71.67 kg

DRUGS (1)
  1. SYSTANE ULTRA [Suspect]
     Active Substance: POLYETHYLENE GLYCOL 400\PROPYLENE GLYCOL
     Indication: DRY EYE
     Dosage: 1 GTT, QID
     Route: 047
     Dates: start: 2016

REACTIONS (4)
  - Rash [Recovered/Resolved]
  - Skin burning sensation [Unknown]
  - Skin sensitisation [Unknown]
  - Dry skin [Unknown]

NARRATIVE: CASE EVENT DATE: 201607
